FAERS Safety Report 20657082 (Version 1)
Quarter: 2022Q1

REPORT INFORMATION
  Report Type: Spontaneous
  Country: None (occurrence: IN)
  Receive Date: 20220331
  Receipt Date: 20220331
  Transmission Date: 20220423
  Serious: Yes (Hospitalization, Other)
  Sender: FDA-Public Use
  Company Number: IN-Oxford Pharmaceuticals, LLC-2127269

PATIENT
  Age: 46 Year
  Sex: Male

DRUGS (5)
  1. BACLOFEN [Suspect]
     Active Substance: BACLOFEN
     Indication: Hiccups
     Route: 048
  2. ISONIAZID [Concomitant]
     Active Substance: ISONIAZID
  3. RIFAMPIN [Concomitant]
     Active Substance: RIFAMPIN
  4. PYRAZINAMIDE [Concomitant]
     Active Substance: PYRAZINAMIDE
  5. ETHAMBUTOL [Concomitant]
     Active Substance: ETHAMBUTOL HYDROCHLORIDE

REACTIONS (3)
  - Neurotoxicity [Recovered/Resolved]
  - Abdominal pain upper [Recovered/Resolved]
  - Chest pain [Recovered/Resolved]
